FAERS Safety Report 4833764-3 (Version None)
Quarter: 2005Q4

REPORT INFORMATION
  Report Type: 
  Country: None (occurrence: None)
  Receive Date: 20051118
  Receipt Date: 20051118
  Transmission Date: 20060501
  Serious: Yes (Life-Threatening, Hospitalization)
  Sender: FDA-Public Use
  Company Number: None

PATIENT
  Age: 83 Year
  Sex: Male
  Weight: 71.6683 kg

DRUGS (2)
  1. BACTRIM  (SULFAMETHOXAZOLE/TRIMETHOPRIM)  80-16 MG/ML   SICOR [Suspect]
     Indication: ESCHERICHIA INFECTION
     Dosage: 20 ML   -1600-320 MG-   Q 12H  IV
     Route: 042
     Dates: start: 20051110, end: 20051111
  2. BACTRIM  (SULFAMETHOXAZOLE/TRIMETHOPRIM)  80-16 MG/ML   SICOR [Suspect]
     Indication: URINARY TRACT INFECTION
     Dosage: 20 ML   -1600-320 MG-   Q 12H  IV
     Route: 042
     Dates: start: 20051110, end: 20051111

REACTIONS (1)
  - RASH ERYTHEMATOUS [None]
